FAERS Safety Report 5843693 (Version 9)
Quarter: 2013Q2

REPORT INFORMATION
  Report Type: Spontaneous
  Country: US (occurrence: US)
  Receive Date: 20050722
  Receipt Date: 20130423
  Transmission Date: 20140414
  Serious: Yes (Death, Hospitalization, Other)
  Sender: FDA-Public Use
  Company Number: US-JNJFOC-20050703829

PATIENT
  Age: 22 Year
  Sex: Female

DRUGS (25)
  1. DURAGESIC [Suspect]
     Indication: PAIN
     Route: 062
     Dates: start: 20030707
  2. DURAGESIC [Suspect]
     Indication: PAIN
     Route: 062
     Dates: start: 20000910, end: 2001
  3. DURAGESIC [Suspect]
     Indication: PAIN
     Route: 062
     Dates: start: 20030130, end: 20030707
  4. DURAGESIC [Suspect]
     Indication: PAIN
     Route: 062
     Dates: start: 19991201, end: 19991228
  5. DURAGESIC [Suspect]
     Indication: PAIN
     Route: 062
     Dates: start: 19991102, end: 19991201
  6. DURAGESIC [Suspect]
     Indication: PAIN
     Route: 062
     Dates: end: 20040608
  7. DURAGESIC [Suspect]
     Indication: PAIN
     Route: 062
     Dates: start: 199910, end: 199910
  8. DURAGESIC [Suspect]
     Indication: PAIN
     Route: 062
     Dates: start: 199910, end: 199910
  9. DURAGESIC [Suspect]
     Indication: PAIN
     Route: 062
     Dates: start: 2002, end: 20030130
  10. DURAGESIC [Suspect]
     Indication: PAIN
     Route: 062
     Dates: start: 2000, end: 20000910
  11. DURAGESIC [Suspect]
     Indication: PAIN
     Route: 062
     Dates: start: 2001, end: 2002
  12. MYLAN FENTANYL TRANSDERMAL SYSTEM [Suspect]
     Indication: PRODUCT USED FOR UNKNOWN INDICATION
     Route: 062
  13. SIMETHICONE [Concomitant]
     Indication: PRODUCT USED FOR UNKNOWN INDICATION
     Dates: end: 20040608
  14. QUETIAPINE FUMARATE [Concomitant]
     Indication: PRODUCT USED FOR UNKNOWN INDICATION
     Dates: end: 20040608
  15. ESCITALOPRAM [Concomitant]
     Indication: PRODUCT USED FOR UNKNOWN INDICATION
     Dates: end: 20040608
  16. OXYCODONE [Concomitant]
     Indication: PRODUCT USED FOR UNKNOWN INDICATION
     Dates: start: 19990710, end: 20040608
  17. ALPRAZOLAM [Concomitant]
     Indication: PRODUCT USED FOR UNKNOWN INDICATION
     Dates: end: 20040608
  18. ONDANSETRON [Concomitant]
     Indication: PRODUCT USED FOR UNKNOWN INDICATION
     Dates: end: 20040608
  19. MEPERIDINE [Concomitant]
     Indication: PRODUCT USED FOR UNKNOWN INDICATION
     Dates: end: 20040608
  20. DEXTROAMPHETAMINE [Concomitant]
     Indication: PRODUCT USED FOR UNKNOWN INDICATION
     Dates: end: 20040608
  21. GABAPENTIN [Concomitant]
     Indication: PRODUCT USED FOR UNKNOWN INDICATION
     Dates: end: 20040608
  22. MODAFINIL [Concomitant]
     Indication: PRODUCT USED FOR UNKNOWN INDICATION
     Dates: end: 20040608
  23. TEGASEROD [Concomitant]
     Indication: PRODUCT USED FOR UNKNOWN INDICATION
     Dates: end: 20040608
  24. HYDROCORTISONE BUTYRATE [Concomitant]
     Indication: PRODUCT USED FOR UNKNOWN INDICATION
     Route: 061
     Dates: end: 20040608
  25. ACETAMINOPHEN [Concomitant]
     Indication: PRODUCT USED FOR UNKNOWN INDICATION
     Dates: end: 20040608

REACTIONS (34)
  - Device leakage [Unknown]
  - Toxicity to various agents [Fatal]
  - Cerebrovascular accident [Unknown]
  - Suicidal ideation [Recovered/Resolved]
  - Bipolar disorder [Unknown]
  - Post-traumatic stress disorder [Unknown]
  - Dehydration [Unknown]
  - Pulmonary oedema [Not Recovered/Not Resolved]
  - Drug abuse [Unknown]
  - Fatigue [Unknown]
  - Abdominal pain [Unknown]
  - Drug dependence [Unknown]
  - Vomiting [Unknown]
  - Headache [Unknown]
  - Hypokalaemia [Recovered/Resolved]
  - Haematemesis [Unknown]
  - Migraine [Unknown]
  - Mixed connective tissue disease [Not Recovered/Not Resolved]
  - Application site rash [Unknown]
  - Application site pustules [Unknown]
  - Sinusitis [Unknown]
  - Somnolence [Unknown]
  - Syncope [Unknown]
  - Depression [Unknown]
  - Hiatus hernia [Unknown]
  - Ileus [Unknown]
  - Skin lesion [Unknown]
  - Road traffic accident [Recovered/Resolved]
  - White blood cell count decreased [Unknown]
  - Rash [Unknown]
  - Constipation [Unknown]
  - Breast tenderness [Unknown]
  - Breast discharge [Unknown]
  - Ear pain [Unknown]
